FAERS Safety Report 7001776-X (Version None)
Quarter: 2010Q3

REPORT INFORMATION
  Report Type: 
  Country: None (occurrence: None)
  Receive Date: 20100920
  Receipt Date: 20071217
  Transmission Date: 20110219
  Serious: Yes (Other)
  Sender: FDA-Public Use
  Company Number: US-ASTRAZENECA-2006UW23115

PATIENT
  Age: 18936 Day
  Sex: Female
  Weight: 90.7 kg

DRUGS (11)
  1. SEROQUEL [Suspect]
     Indication: SCHIZOPHRENIA
     Route: 048
     Dates: start: 20010101
  2. SEROQUEL [Suspect]
     Indication: DEPRESSION
     Route: 048
     Dates: start: 20010101
  3. SEROQUEL [Suspect]
     Indication: ANXIETY
     Route: 048
     Dates: start: 20010101
  4. SEROQUEL [Suspect]
     Dosage: 100-200 MG DISPENSED, 100 MG TID
     Route: 048
     Dates: start: 20020924
  5. SEROQUEL [Suspect]
     Dosage: 100-200 MG DISPENSED, 100 MG TID
     Route: 048
     Dates: start: 20020924
  6. SEROQUEL [Suspect]
     Dosage: 100-200 MG DISPENSED, 100 MG TID
     Route: 048
     Dates: start: 20020924
  7. DOXEPIN HCL [Concomitant]
     Dates: start: 20020924
  8. FLUOXETINE HCL [Concomitant]
     Dosage: 40-60 MG
     Dates: start: 20020924
  9. GEMFIBROZIL [Concomitant]
     Dosage: 600-1200 MG
     Dates: start: 20020924
  10. NORVASC [Concomitant]
     Route: 048
     Dates: start: 20020924
  11. FUROSEMIDE [Concomitant]
     Route: 048
     Dates: start: 20020924

REACTIONS (4)
  - DIABETES MELLITUS [None]
  - GLUCOSE TOLERANCE IMPAIRED [None]
  - HYPERGLYCAEMIA [None]
  - TYPE 2 DIABETES MELLITUS [None]
